FAERS Safety Report 6222180-8 (Version None)
Quarter: 2009Q2

REPORT INFORMATION
  Report Type: 
  Country: None (occurrence: None)
  Receive Date: 20090611
  Receipt Date: 20090602
  Transmission Date: 20091009
  Serious: Yes (Congenital Anomaly)
  Sender: FDA-Public Use
  Company Number: US-ROCHE-636893

PATIENT

DRUGS (3)
  1. MYCOPHENOLATE MOFETIL [Suspect]
     Route: 064
  2. GENGRAF [Suspect]
     Route: 064
  3. SIROLIMUS [Suspect]
     Route: 064

REACTIONS (1)
  - MANDIBULOFACIAL DYSOSTOSIS [None]
